FAERS Safety Report 21051760 (Version 1)
Quarter: 2022Q3

REPORT INFORMATION
  Report Type: Spontaneous
  Country: US (occurrence: None)
  Receive Date: 20220706
  Receipt Date: 20220706
  Transmission Date: 20221027
  Serious: Yes (Hospitalization)
  Sender: FDA-Public Use
  Company Number: None

PATIENT
  Sex: Male

DRUGS (2)
  1. ENBREL [Suspect]
     Active Substance: ETANERCEPT
     Indication: Rheumatoid arthritis
  2. ENBREL [Suspect]
     Active Substance: ETANERCEPT
     Indication: Rheumatoid factor positive

REACTIONS (2)
  - Road traffic accident [None]
  - Ankle fracture [None]
